FAERS Safety Report 6034838-4 (Version None)
Quarter: 2009Q1

REPORT INFORMATION
  Report Type: 
  Country: None (occurrence: None)
  Receive Date: 20090108
  Receipt Date: 20081223
  Transmission Date: 20090719
  Serious: Yes (Death)
  Sender: FDA-Public Use
  Company Number: PAR_02503_2009

PATIENT
  Age: 44 Year
  Sex: Female

DRUGS (5)
  1. IBUPROFEN [Suspect]
     Indication: COMPLETED SUICIDE
     Dosage: DF ORAL
     Route: 048
  2. HYDROXYZINE [Suspect]
     Indication: COMPLETED SUICIDE
     Dosage: DF
  3. ACETAMINOPHEN [Suspect]
     Indication: COMPLETED SUICIDE
     Dosage: DF ORAL
     Route: 048
  4. COCAINE [Suspect]
     Indication: COMPLETED SUICIDE
     Dosage: DF RESPIRATORY (INHALATION)
     Route: 055
  5. DILTIAZEM [Suspect]
     Indication: COMPLETED SUICIDE
     Dosage: DF

REACTIONS (2)
  - COMPLETED SUICIDE [None]
  - MULTIPLE DRUG OVERDOSE INTENTIONAL [None]
